FAERS Safety Report 18888058 (Version 1)
Quarter: 2021Q1

REPORT INFORMATION
  Report Type: Spontaneous
  Country: EG (occurrence: EG)
  Receive Date: 20210212
  Receipt Date: 20210212
  Transmission Date: 20210420
  Serious: Yes (Death)
  Sender: FDA-Public Use
  Company Number: NVSC2021EG033851

PATIENT
  Sex: Female

DRUGS (3)
  1. IBRANCE [Suspect]
     Active Substance: PALBOCICLIB
     Indication: PRODUCT USED FOR UNKNOWN INDICATION
     Dosage: (ONCE DAILY FOR 3 WEEKS ONTHEN 1 WEEK OFF)
     Route: 048
     Dates: start: 202010
  2. OSTEOCARE [Suspect]
     Active Substance: CALCIUM\CHOLECALCIFEROL\MAGNESIUM\ZINC
     Indication: PRODUCT USED FOR UNKNOWN INDICATION
     Dosage: TID, (2 TABLET)
     Route: 065
  3. FEMARA [Suspect]
     Active Substance: LETROZOLE
     Indication: PRODUCT USED FOR UNKNOWN INDICATION
     Dosage: QD (1 TABLET)
     Route: 065

REACTIONS (1)
  - Death [Fatal]
